FAERS Safety Report 8487954-1 (Version None)
Quarter: 2012Q3

REPORT INFORMATION
  Report Type: 
  Country: None (occurrence: None)
  Receive Date: 20120705
  Receipt Date: 20120627
  Transmission Date: 20120928
  Serious: Yes (Other)
  Sender: FDA-Public Use
  Company Number: US-BAYER-2012-065077

PATIENT
  Sex: Male

DRUGS (1)
  1. ASPIRIN [Suspect]
     Dosage: UNK
     Route: 048
     Dates: start: 20090101

REACTIONS (1)
  - ERECTILE DYSFUNCTION [None]
